FAERS Safety Report 18293934 (Version 2)
Quarter: 2020Q4

REPORT INFORMATION
  Report Type: Other
  Country: US (occurrence: US)
  Receive Date: 20200921
  Receipt Date: 20201221
  Transmission Date: 20210113
  Serious: No
  Sender: FDA-Public Use
  Company Number: US-ACORDA-ACO_166132_2020

PATIENT
  Sex: Female

DRUGS (2)
  1. INBRIJA [Suspect]
     Active Substance: LEVODOPA
     Indication: ON AND OFF PHENOMENON
  2. INBRIJA [Suspect]
     Active Substance: LEVODOPA
     Indication: PARKINSON^S DISEASE
     Dosage: 84 MILLIGRAM, PRN, NOT TO EXCEED 5 DOSES PER DAY

REACTIONS (9)
  - Cough [Unknown]
  - Muscular weakness [Unknown]
  - Device difficult to use [Unknown]
  - Tremor [Unknown]
  - Rhinorrhoea [Unknown]
  - Incorrect dose administered by device [Unknown]
  - Product residue present [Unknown]
  - Therapeutic product effect decreased [Unknown]
  - Mobility decreased [Unknown]
